FAERS Safety Report 10206625 (Version 2)
Quarter: 2014Q2

REPORT INFORMATION
  Report Type: Spontaneous
  Country: IT (occurrence: IT)
  Receive Date: 20140530
  Receipt Date: 20140612
  Transmission Date: 20141212
  Serious: Yes (Hospitalization)
  Sender: FDA-Public Use
  Company Number: IT-PFIZER INC-2014148608

PATIENT
  Age: 25 Year
  Sex: Female

DRUGS (2)
  1. LYRICA [Suspect]
     Dosage: 8 DF, TOTAL
     Route: 048
     Dates: start: 20131121, end: 20131121
  2. TOPAMAX [Suspect]
     Dosage: 20 DF, TOTAL
     Route: 048
     Dates: start: 20131121, end: 20131121

REACTIONS (3)
  - Drug abuse [Recovering/Resolving]
  - Somnolence [Recovering/Resolving]
  - Vertigo [Recovering/Resolving]
